FAERS Safety Report 25245526 (Version 3)
Quarter: 2025Q2

REPORT INFORMATION
  Report Type: Spontaneous
  Country: IT (occurrence: IT)
  Receive Date: 20250428
  Receipt Date: 20250519
  Transmission Date: 20250717
  Serious: Yes (Life-Threatening, Hospitalization, Other)
  Sender: AUROBINDO
  Company Number: IT-ZENTIVA-2025-ZT-032242

PATIENT
  Age: 82 Year
  Sex: Male

DRUGS (2)
  1. ASPIRIN [Suspect]
     Active Substance: ASPIRIN
     Indication: Antiplatelet therapy
     Route: 065
  2. CLOPIDOGREL [Suspect]
     Active Substance: CLOPIDOGREL BISULFATE
     Indication: Antiplatelet therapy
     Route: 065

REACTIONS (5)
  - Gastrointestinal haemorrhage [Unknown]
  - Melaena [Unknown]
  - Fatigue [Unknown]
  - Anaemia [Unknown]
  - Gastrointestinal disorder [Unknown]
